FAERS Safety Report 20039269 (Version 1)
Quarter: 2021Q4

REPORT INFORMATION
  Report Type: Spontaneous
  Country: US (occurrence: US)
  Receive Date: 20211105
  Receipt Date: 20211105
  Transmission Date: 20220303
  Serious: No
  Sender: FDA-Public Use
  Company Number: US-BIOMARINAP-US-2021-139374

PATIENT
  Age: 13 Year
  Sex: Female
  Weight: 37.3 kg

DRUGS (1)
  1. ALDURAZYME [Suspect]
     Active Substance: LARONIDASE
     Indication: Mucopolysaccharidosis I
     Dosage: 23.2 MILLIGRAM, QW
     Route: 042
     Dates: start: 20210803

REACTIONS (1)
  - Weight increased [Unknown]
